FAERS Safety Report 8793462 (Version 1)
Quarter: 2012Q4

REPORT INFORMATION
  Report Type: 
  Country: US (occurrence: US)
  Receive Date: 20120917
  Receipt Date: 20120917
  Transmission Date: 20130627
  Serious: Yes (Other)
  Sender: FDA-Public Use
  Company Number: US-PFIZER INC-2012227425

PATIENT
  Sex: Female

DRUGS (3)
  1. PREPARATION H [Suspect]
     Indication: HAEMORRHOIDS
     Dosage: UNK
  2. PREPARATION H [Suspect]
     Indication: CONSTIPATION
  3. PREPARATION H [Suspect]
     Indication: GASTROINTESTINAL MOTILITY DISORDER

REACTIONS (2)
  - Haematochezia [Unknown]
  - Gastrointestinal motility disorder [Unknown]
